FAERS Safety Report 8255967-0 (Version None)
Quarter: 2012Q2

REPORT INFORMATION
  Report Type: 
  Country: None (occurrence: None)
  Receive Date: 20120403
  Receipt Date: 20120326
  Transmission Date: 20120825
  Serious: No
  Sender: FDA-Public Use
  Company Number: US-B.I. PHARMACEUTICALS,INC./RIDGEFIELD-2012-BP-04917BP

PATIENT
  Sex: Male

DRUGS (12)
  1. LIPITOR [Concomitant]
     Indication: BLOOD CHOLESTEROL INCREASED
     Dosage: 20 MG
     Route: 048
  2. PROVENTIL [Concomitant]
     Indication: CHRONIC OBSTRUCTIVE PULMONARY DISEASE
     Dosage: 90 MCG
     Route: 055
  3. ADVAIR DISKUS 100/50 [Concomitant]
     Indication: CHRONIC OBSTRUCTIVE PULMONARY DISEASE
     Route: 055
  4. ADVAIR DISKUS 100/50 [Concomitant]
     Indication: ASTHMA
  5. OMEPRAZOLE [Concomitant]
     Indication: ABDOMINAL DISCOMFORT
     Dosage: 40 MG
     Route: 048
  6. ALBUTEROL [Concomitant]
     Indication: CHRONIC OBSTRUCTIVE PULMONARY DISEASE
     Route: 055
  7. PROVENTIL [Concomitant]
     Indication: ASTHMA
  8. PREDNISONE [Concomitant]
     Indication: ROUTINE HEALTH MAINTENANCE
     Dosage: 5 MG
     Route: 048
  9. BUPROPION HYDROCHLORIDE [Concomitant]
     Dosage: 100 MG
     Route: 048
  10. ASPIRIN [Concomitant]
     Indication: PROPHYLAXIS
     Dosage: 81 MG
     Route: 048
  11. SPIRIVA [Suspect]
     Indication: CHRONIC OBSTRUCTIVE PULMONARY DISEASE
     Dosage: 18 MCG
     Route: 055
     Dates: start: 20070101
  12. ALBUTEROL [Concomitant]
     Indication: ASTHMA

REACTIONS (1)
  - DYSPNOEA [None]
